FAERS Safety Report 25720833 (Version 2)
Quarter: 2025Q3

REPORT INFORMATION
  Report Type: Spontaneous
  Country: US (occurrence: US)
  Receive Date: 20250825
  Receipt Date: 20250917
  Transmission Date: 20251021
  Serious: Yes (Other)
  Sender: ROCHE
  Company Number: US-ROCHE-10000364566

PATIENT
  Age: 10 Year
  Sex: Female
  Weight: 44.45 kg

DRUGS (10)
  1. XOLAIR [Suspect]
     Active Substance: OMALIZUMAB
     Indication: Asthma
     Route: 058
     Dates: start: 20241216, end: 20250522
  2. ISOTONIC SODIUM CHLORIDE SOLUTION [Concomitant]
     Active Substance: SODIUM CHLORIDE
     Route: 045
  3. NASACORT [Concomitant]
     Active Substance: TRIAMCINOLONE ACETONIDE
  4. ZYRTEC [Concomitant]
     Active Substance: CETIRIZINE HYDROCHLORIDE
  5. SINGULAIR [Concomitant]
     Active Substance: MONTELUKAST SODIUM
  6. EPIPEN [Concomitant]
     Active Substance: EPINEPHRINE
  7. BUDESONIDE\FORMOTEROL [Concomitant]
     Active Substance: BUDESONIDE\FORMOTEROL
  8. PREDNISONE [Concomitant]
     Active Substance: PREDNISONE
  9. ADVAIR HFA [Concomitant]
     Active Substance: FLUTICASONE PROPIONATE\SALMETEROL XINAFOATE
  10. SYMBICORT [Concomitant]
     Active Substance: BUDESONIDE\FORMOTEROL FUMARATE DIHYDRATE

REACTIONS (6)
  - Decreased appetite [Recovered/Resolved]
  - Weight decreased [Recovered/Resolved]
  - Abdominal pain [Recovered/Resolved]
  - Angioedema [Recovered/Resolved]
  - Drug ineffective [Unknown]
  - Growth retardation [Recovered/Resolved]

NARRATIVE: CASE EVENT DATE: 20241216
